FAERS Safety Report 6032141-X (Version None)
Quarter: 2009Q1

REPORT INFORMATION
  Report Type: 
  Country: None (occurrence: None)
  Receive Date: 20090107
  Receipt Date: 20081222
  Transmission Date: 20090719
  Serious: Yes (Other)
  Sender: FDA-Public Use
  Company Number: 2008S1022696

PATIENT
  Age: 67 Year
  Sex: Male

DRUGS (7)
  1. SOTALOL HCL [Suspect]
     Indication: ATRIAL FLUTTER
     Dosage: 40 MG; 3 TIMES A DAY
  2. METHYLPREDNISOLONE 16MG TAB [Concomitant]
  3. ENALAPRIL MALEATE [Concomitant]
  4. CANRENOIC ACID (CANRENOIC ACID) [Concomitant]
  5. BUTIZIDE (BUTIZIDE) [Concomitant]
  6. PHENYTOIN [Concomitant]
  7. LAMOTRIGINE [Concomitant]

REACTIONS (1)
  - BRUGADA SYNDROME [None]
